FAERS Safety Report 6465392-0 (Version None)
Quarter: 2009Q4

REPORT INFORMATION
  Report Type: 
  Country: None (occurrence: None)
  Receive Date: 20091119
  Receipt Date: 20090901
  Transmission Date: 20100525
  Serious: No
  Sender: FDA-Public Use
  Company Number: WAES 0909USA00429

PATIENT
  Age: 80 Year
  Sex: Male

DRUGS (6)
  1. JANUVIA [Suspect]
     Indication: TYPE 2 DIABETES MELLITUS
     Dosage: 50 MG/DAILY/PO
     Route: 048
  2. COZAAR [Concomitant]
  3. LIPITOR [Concomitant]
  4. GLIPIZIDE [Concomitant]
  5. LISINOPRIL [Concomitant]
  6. METFORMIN HCL [Concomitant]

REACTIONS (2)
  - BLOOD CREATINE INCREASED [None]
  - URINE ALBUMIN/CREATININE RATIO INCREASED [None]
